FAERS Safety Report 8348452-9 (Version None)
Quarter: 2012Q2

REPORT INFORMATION
  Report Type: 
  Country: None (occurrence: None)
  Receive Date: 20120509
  Receipt Date: 20120509
  Transmission Date: 20120825
  Serious: Yes (Other)
  Sender: FDA-Public Use
  Company Number: CHPA2012DE005450

PATIENT
  Sex: Female

DRUGS (1)
  1. NICOTINE [Suspect]
     Dosage: UNK, UNK

REACTIONS (1)
  - ASTHMA [None]
